FAERS Safety Report 22003418 (Version 5)
Quarter: 2023Q1

REPORT INFORMATION
  Report Type: Spontaneous
  Country: AT (occurrence: AT)
  Receive Date: 20230217
  Receipt Date: 20230320
  Transmission Date: 20230418
  Serious: Yes (Death, Hospitalization, Other)
  Sender: FDA-Public Use
  Company Number: AT-SERVIER-S23001011

PATIENT
  Age: 72 Year
  Sex: Male

DRUGS (7)
  1. ONIVYDE [Suspect]
     Active Substance: IRINOTECAN HYDROCHLORIDE
     Indication: Pancreatic carcinoma
     Dosage: CYCLE 1, REDUCED DOSE OF 80%, EVERY 2 WEEKS
     Route: 042
     Dates: start: 20210218, end: 20211230
  2. FLUOROURACIL [Concomitant]
     Active Substance: FLUOROURACIL
     Indication: Pancreatic carcinoma
     Dosage: CYCLE 1, REDUCED DOSE OF 80%, EVERY 2 WEEKS
     Route: 042
     Dates: start: 20210218
  3. FLUOROURACIL [Concomitant]
     Active Substance: FLUOROURACIL
     Dosage: CYCLE 2, REDUCED DOSE OF 60%, EVERY 2 WEEKS
     Route: 042
     Dates: start: 20210303, end: 20211230
  4. LEUCOVORIN [Concomitant]
     Active Substance: LEUCOVORIN
     Indication: Pancreatic carcinoma
     Dosage: DOSE 80 %, REDUCED DOSE EVERY 2 WEEKS
     Route: 065
     Dates: start: 20210218
  5. INSULIN NOS [Concomitant]
     Active Substance: INSULIN NOS
     Indication: Diabetes mellitus
     Dosage: UNK
  6. PASPERTIN [Concomitant]
     Indication: Antiemetic supportive care
     Dosage: UNK
     Dates: end: 202102
  7. DOMPERIDONE [Concomitant]
     Active Substance: DOMPERIDONE
     Indication: Antiemetic supportive care
     Dosage: UNK, PRN
     Dates: start: 202102

REACTIONS (12)
  - Malignant neoplasm progression [Fatal]
  - Pulmonary embolism [Unknown]
  - General physical health deterioration [Recovered/Resolved]
  - Asthenia [Recovered/Resolved]
  - Nausea [Recovered/Resolved]
  - Dehydration [Recovered/Resolved]
  - Asthenia [Unknown]
  - Somnolence [Unknown]
  - Dyskinesia [Unknown]
  - COVID-19 [Unknown]
  - Fatigue [Unknown]
  - Ascites [Unknown]

NARRATIVE: CASE EVENT DATE: 20210201
